FAERS Safety Report 7782073-1 (Version None)
Quarter: 2011Q3

REPORT INFORMATION
  Report Type: 
  Country: None (occurrence: None)
  Receive Date: 20110927
  Receipt Date: 20110919
  Transmission Date: 20111222
  Serious: Yes (Hospitalization, Other)
  Sender: FDA-Public Use
  Company Number: KR-ELI_LILLY_AND_COMPANY-KR201109004784

PATIENT
  Age: 61 Year
  Sex: Female
  Weight: 58 kg

DRUGS (2)
  1. HUMALOG MIX 75/25 [Suspect]
     Dosage: UNK
     Route: 058
     Dates: start: 20110712
  2. HUMALOG MIX 75/25 [Suspect]
     Indication: TYPE 2 DIABETES MELLITUS
     Dosage: UNK
     Route: 058
     Dates: start: 20110712

REACTIONS (4)
  - HEADACHE [None]
  - ROAD TRAFFIC ACCIDENT [None]
  - VOMITING [None]
  - NAUSEA [None]
